FAERS Safety Report 8116682-7 (Version None)
Quarter: 2012Q1

REPORT INFORMATION
  Report Type: 
  Country: None (occurrence: None)
  Receive Date: 20120206
  Receipt Date: 20120123
  Transmission Date: 20120608
  Serious: Yes (Hospitalization)
  Sender: FDA-Public Use
  Company Number: PHHO2012GB001812

PATIENT
  Sex: Male
  Weight: 67 kg

DRUGS (7)
  1. ATORVASTATIN [Concomitant]
     Dosage: 75 MG, UNK
     Route: 048
     Dates: start: 20110817
  2. LISINOPRIL [Concomitant]
     Dosage: 20 MG, UNK
     Route: 048
     Dates: start: 20110817
  3. ZOLEDRONIC [Suspect]
     Indication: METASTASES TO BONE
     Dosage: 40 MG, UNK
     Route: 042
     Dates: start: 20111115
  4. HORMONES [Concomitant]
     Indication: METASTASES TO BONE
     Dosage: 10.8 MG, UNK
     Route: 058
     Dates: start: 20110927, end: 20120110
  5. DOCETAXEL [Suspect]
     Indication: METASTASES TO BONE
     Dosage: 130 MG, UNK
     Route: 042
     Dates: start: 20111115
  6. ASPIRIN [Concomitant]
     Dosage: 10 MG, UNK
     Route: 048
     Dates: start: 20110817
  7. ZOLADEX [Concomitant]
     Dosage: 108 MG, UNK
     Route: 058
     Dates: start: 20111018

REACTIONS (2)
  - CHEST PAIN [None]
  - ATRIAL FIBRILLATION [None]
